FAERS Safety Report 12136725 (Version 4)
Quarter: 2016Q2

REPORT INFORMATION
  Report Type: Spontaneous
  Country: DE (occurrence: DE)
  Receive Date: 20160302
  Receipt Date: 20160414
  Transmission Date: 20160815
  Serious: Yes (Hospitalization, Other)
  Sender: FDA-Public Use
  Company Number: DE-BEH-2016059445

PATIENT
  Sex: Female
  Weight: 64 kg

DRUGS (75)
  1. HAEMATE P [Suspect]
     Active Substance: ANTIHEMOPHILIC FACTOR HUMAN
     Dosage: DOSE: 6X HAEMATE P 1000
     Dates: start: 20160104
  2. HAEMATE P [Suspect]
     Active Substance: ANTIHEMOPHILIC FACTOR HUMAN
     Dosage: DOSE: 3X HAEMATE P 1000
     Dates: start: 20160125
  3. HAEMATE P [Suspect]
     Active Substance: ANTIHEMOPHILIC FACTOR HUMAN
     Dosage: DOSE: 2X HAEMATE P 1000
     Dates: start: 20160125
  4. HAEMATE P [Suspect]
     Active Substance: ANTIHEMOPHILIC FACTOR HUMAN
     Dosage: DOSE: 1X HAEMATE P 1000 OF BATCH NO. NOT PROVIDED
     Dates: start: 20160203
  5. HAEMATE P [Suspect]
     Active Substance: ANTIHEMOPHILIC FACTOR HUMAN
     Dosage: DOSE: 3X HAEMATE P 1000
     Dates: start: 20160203
  6. HAEMATE P [Suspect]
     Active Substance: ANTIHEMOPHILIC FACTOR HUMAN
     Dosage: DOSE: 1X HAEMATE P 1000
     Dates: start: 20160115
  7. HAEMATE P [Suspect]
     Active Substance: ANTIHEMOPHILIC FACTOR HUMAN
     Dosage: DOSE: 2X HAEMATE P 1000
     Dates: start: 20160123
  8. HAEMATE P [Suspect]
     Active Substance: ANTIHEMOPHILIC FACTOR HUMAN
     Dosage: DOSE: 5X HAEMATE P 1000
     Dates: start: 20160128
  9. HAEMATE P [Suspect]
     Active Substance: ANTIHEMOPHILIC FACTOR HUMAN
     Dosage: DOSE: 4X HAEMATE P 1000
     Dates: start: 20160131
  10. HAEMATE P [Suspect]
     Active Substance: ANTIHEMOPHILIC FACTOR HUMAN
     Dosage: DOSE: 1 HAEMATE P 500
     Dates: start: 20160204
  11. HAEMATE P [Suspect]
     Active Substance: ANTIHEMOPHILIC FACTOR HUMAN
     Dosage: DOSE: 4X HAEMATE P 1000
     Dates: start: 20160208
  12. HAEMATE P [Suspect]
     Active Substance: ANTIHEMOPHILIC FACTOR HUMAN
     Dosage: DOSE: 2X HAEMATE P 500
     Dates: start: 20160210
  13. HAEMATE P [Suspect]
     Active Substance: ANTIHEMOPHILIC FACTOR HUMAN
     Dosage: DOSE: 1X HAEMATE P 1000
     Dates: start: 20160221
  14. HAEMATE P [Suspect]
     Active Substance: ANTIHEMOPHILIC FACTOR HUMAN
     Dosage: DOSE: 1X HAEMATE P 1000
     Dates: start: 20160222
  15. HAEMATE P [Suspect]
     Active Substance: ANTIHEMOPHILIC FACTOR HUMAN
     Dosage: DOSE: 2X HAEMATE P 1000
     Dates: start: 20160223
  16. HAEMATE P [Suspect]
     Active Substance: ANTIHEMOPHILIC FACTOR HUMAN
     Dosage: DOSE: 1X HAEMATE P 1000
     Dates: start: 20160223
  17. FIBROGAMMIN [Suspect]
     Active Substance: FACTOR XIII CONCENTRATE (HUMAN)
     Indication: AMENORRHOEA
     Dosage: BATCH NO. NOT AVAILABLE UNTIL END OF 2015, EXPOSURE PRIOR AND DURING PREGNANCY
  18. FIBROGAMMIN [Suspect]
     Active Substance: FACTOR XIII CONCENTRATE (HUMAN)
     Indication: HAEMORRHAGE PROPHYLAXIS
     Dosage: BATCH NO. NOT AVAILABLE UNTIL END OF 2015, EXPOSURE PRIOR AND DURING PREGNANCY
  19. FEMIBION [Concomitant]
     Active Substance: VITAMINS
     Indication: PREGNANCY
     Dosage: EXPOSURE DURING PREGNANCY
     Route: 048
  20. HAEMATE P [Suspect]
     Active Substance: ANTIHEMOPHILIC FACTOR HUMAN
     Dosage: DOSE: 1X HAEMATE P 1000
     Dates: start: 20160105
  21. HAEMATE P [Suspect]
     Active Substance: ANTIHEMOPHILIC FACTOR HUMAN
     Dosage: DOSE: 3X HAEMATE P 1000
     Dates: start: 20160115
  22. HAEMATE P [Suspect]
     Active Substance: ANTIHEMOPHILIC FACTOR HUMAN
     Dosage: DOSE: 5X HAEMATE P 1000
     Dates: start: 20160117
  23. HAEMATE P [Suspect]
     Active Substance: ANTIHEMOPHILIC FACTOR HUMAN
     Dosage: DOSE: 5X HAEMATE P 1000 (BATCH NO. OF ONE VIAL DIFFICULT TO READ)
     Dates: start: 20160122
  24. HAEMATE P [Suspect]
     Active Substance: ANTIHEMOPHILIC FACTOR HUMAN
     Dosage: DOSE: 5X HAEMATE P 1000
     Dates: start: 20160126
  25. HAEMATE P [Suspect]
     Active Substance: ANTIHEMOPHILIC FACTOR HUMAN
     Dosage: DOSE: 4X HAEMATE P 500
     Dates: start: 20160130
  26. FIBROGAMMIN [Suspect]
     Active Substance: FACTOR XIII CONCENTRATE (HUMAN)
     Indication: AMENORRHOEA
     Dosage: BATCH NO. NOT AVAILABLE UNTIL END OF 2015, EXPOSURE PRIOR AND DURING PREGNANCY
  27. L-THYROXIN [Concomitant]
     Active Substance: LEVOTHYROXINE SODIUM
     Indication: HYPOTHYROIDISM
     Dosage: EXPOSURE PRIOR TO PREGNANCY
     Route: 048
  28. HAEMATE P [Suspect]
     Active Substance: ANTIHEMOPHILIC FACTOR HUMAN
     Dosage: DOSE: 5X HAEMATE P 1000
     Dates: start: 20160114
  29. HAEMATE P [Suspect]
     Active Substance: ANTIHEMOPHILIC FACTOR HUMAN
     Dosage: DOSE: 6X HAEMATE P 1000 (LOT NO. OF ONE VIAL DIFFICULT TO READ)
     Dates: start: 20160118
  30. HAEMATE P [Suspect]
     Active Substance: ANTIHEMOPHILIC FACTOR HUMAN
     Dosage: DOSE: 5X HAEMATE P 1000
     Dates: start: 20160121
  31. HAEMATE P [Suspect]
     Active Substance: ANTIHEMOPHILIC FACTOR HUMAN
     Dosage: DOSE: 5X HAEMATE P 1000
     Dates: start: 20160127
  32. HAEMATE P [Suspect]
     Active Substance: ANTIHEMOPHILIC FACTOR HUMAN
     Dosage: DOSE: 10X HAEMATE P 500
     Dates: start: 20160201
  33. HAEMATE P [Suspect]
     Active Substance: ANTIHEMOPHILIC FACTOR HUMAN
     Dosage: DOSE: 8X HAEMATE P 500 OF BATCH NO. NOT PROVIDED
     Dates: start: 20160205
  34. HAEMATE P [Suspect]
     Active Substance: ANTIHEMOPHILIC FACTOR HUMAN
     Dosage: DOSE: 3X HAEMATE P 1000
     Dates: start: 20160212
  35. HAEMATE P [Suspect]
     Active Substance: ANTIHEMOPHILIC FACTOR HUMAN
     Dosage: DOSE: 4X HAEMATE P 1000
     Dates: start: 20160214
  36. HAEMATE P [Suspect]
     Active Substance: ANTIHEMOPHILIC FACTOR HUMAN
     Dosage: DOSE: 2X HAEMATE P 1000
     Dates: start: 20160216
  37. HAEMATE P [Suspect]
     Active Substance: ANTIHEMOPHILIC FACTOR HUMAN
     Dosage: DOSE: 3X HAEMATE P 1000
     Dates: start: 20160217
  38. HAEMATE P [Suspect]
     Active Substance: ANTIHEMOPHILIC FACTOR HUMAN
     Dosage: DOSE: 3X HAEMATE P 1000
     Dates: start: 20160218
  39. METFORMIN [Concomitant]
     Active Substance: METFORMIN HYDROCHLORIDE
     Indication: PLANNING TO BECOME PREGNANT
     Dosage: EXPOSURE PRIOR TO PREGNANCY
  40. HAEMATE P [Suspect]
     Active Substance: ANTIHEMOPHILIC FACTOR HUMAN
     Dosage: DOSE: 1X HAEMATE P 1000
     Dates: start: 20160105
  41. HAEMATE P [Suspect]
     Active Substance: ANTIHEMOPHILIC FACTOR HUMAN
     Dosage: DOSE: 6X HAEMATE P 500
     Dates: start: 20160202
  42. HAEMATE P [Suspect]
     Active Substance: ANTIHEMOPHILIC FACTOR HUMAN
     Dosage: DOSE: 7X HAEMATE P 500 (BATCH NO. OF ONE VIAL DIFFICULT TO READ)
     Dates: start: 20160204
  43. HAEMATE P [Suspect]
     Active Substance: ANTIHEMOPHILIC FACTOR HUMAN
     Dosage: DOSE: 4X HAEMATE P 1000
     Dates: start: 20160206
  44. HAEMATE P [Suspect]
     Active Substance: ANTIHEMOPHILIC FACTOR HUMAN
     Dosage: DOSE: 4X HAEMATE P 1000
     Dates: start: 20160213
  45. HAEMATE P [Suspect]
     Active Substance: ANTIHEMOPHILIC FACTOR HUMAN
     Dosage: DOSE: 2X HAEMATE P 1000
     Dates: start: 20160215
  46. HAEMATE P [Suspect]
     Active Substance: ANTIHEMOPHILIC FACTOR HUMAN
     Dosage: DOSE: 3X HAEMATE P 1000
     Dates: start: 20160219
  47. HAEMATE P [Suspect]
     Active Substance: ANTIHEMOPHILIC FACTOR HUMAN
     Dosage: DOSE: 2X HAEMATE P 1000
     Dates: start: 20160222
  48. HAEMATE P [Suspect]
     Active Substance: ANTIHEMOPHILIC FACTOR HUMAN
     Indication: HAEMORRHAGE PROPHYLAXIS
     Dosage: BATCH NO. NOT AVAILABLE UNTIL END OF 2015, EXPOSURE PRIOR AND DURING PREGNANCY
  49. HAEMATE P [Suspect]
     Active Substance: ANTIHEMOPHILIC FACTOR HUMAN
     Dosage: DOSE: 2X HAEMATE P 1000
     Dates: start: 20160114
  50. HAEMATE P [Suspect]
     Active Substance: ANTIHEMOPHILIC FACTOR HUMAN
     Dosage: DOSE: 1X HAEMATE P 1000
     Dates: start: 20160115
  51. HAEMATE P [Suspect]
     Active Substance: ANTIHEMOPHILIC FACTOR HUMAN
     Dosage: DOSE: 1X HAEMATE P 1000
     Dates: start: 20160115
  52. HAEMATE P [Suspect]
     Active Substance: ANTIHEMOPHILIC FACTOR HUMAN
     Dosage: DOSE: 2X HAEMATE P 1000
     Dates: start: 20160117
  53. HAEMATE P [Suspect]
     Active Substance: ANTIHEMOPHILIC FACTOR HUMAN
     Dosage: DOSE: 3X HAEMATE P 1000
     Dates: start: 20160130
  54. HAEMATE P [Suspect]
     Active Substance: ANTIHEMOPHILIC FACTOR HUMAN
     Dosage: DOSE: 1X HAEMATE P 1000
     Dates: start: 20160203
  55. FERROSANOL [Concomitant]
     Active Substance: FERROUS GLUCONATE
     Indication: IRON DEFICIENCY
     Dosage: EXPOSURE PRIOR AND DURING PREGNANCY
     Route: 048
  56. HAEMATE P [Suspect]
     Active Substance: ANTIHEMOPHILIC FACTOR HUMAN
     Indication: AMENORRHOEA
     Dosage: DOSE: 4X HAEMATE P 1000
     Dates: start: 20160116
  57. HAEMATE P [Suspect]
     Active Substance: ANTIHEMOPHILIC FACTOR HUMAN
     Dosage: DOSE: 6X HAEMATE P 1000
     Dates: start: 20160119
  58. HAEMATE P [Suspect]
     Active Substance: ANTIHEMOPHILIC FACTOR HUMAN
     Dosage: DOSE: 4X HAEMATE P 1000
     Dates: start: 20160123
  59. HAEMATE P [Suspect]
     Active Substance: ANTIHEMOPHILIC FACTOR HUMAN
     Dosage: DOSE: 4X HAEMATE P 1000
     Dates: start: 20160124
  60. HAEMATE P [Suspect]
     Active Substance: ANTIHEMOPHILIC FACTOR HUMAN
     Dosage: DOSE: 4X HAEMATE P 1000
     Dates: start: 20160129
  61. HAEMATE P [Suspect]
     Active Substance: ANTIHEMOPHILIC FACTOR HUMAN
     Dosage: DOSE: 8X HAEMATE P 500 (LOT NO. OF ONE VIAL DIFFICULT TO READ)
     Dates: start: 20160205
  62. HAEMATE P [Suspect]
     Active Substance: ANTIHEMOPHILIC FACTOR HUMAN
     Dosage: DOSE: 4X HAEMATE P 1000
     Dates: start: 20160207
  63. HAEMATE P [Suspect]
     Active Substance: ANTIHEMOPHILIC FACTOR HUMAN
     Dosage: DOSE: 4X HAEMATE P 1000
     Dates: start: 20160210
  64. HAEMATE P [Suspect]
     Active Substance: ANTIHEMOPHILIC FACTOR HUMAN
     Dosage: DOSE: 2X HAEMATE P 1000
     Dates: start: 20160215
  65. HAEMATE P [Suspect]
     Active Substance: ANTIHEMOPHILIC FACTOR HUMAN
     Dosage: DOSE: 2X HAEMATE P 1000
     Dates: start: 20160105
  66. HAEMATE P [Suspect]
     Active Substance: ANTIHEMOPHILIC FACTOR HUMAN
     Dosage: DOSE: 1X HAEMATE P 1000
     Dates: start: 20160115
  67. HAEMATE P [Suspect]
     Active Substance: ANTIHEMOPHILIC FACTOR HUMAN
     Dosage: DOSE: 3X HAEMATE P 1000
     Dates: start: 20160116
  68. HAEMATE P [Suspect]
     Active Substance: ANTIHEMOPHILIC FACTOR HUMAN
     Indication: VON WILLEBRAND^S DISEASE
     Dosage: DOSE: 6X HAEMATE P 1000
     Dates: start: 20160120
  69. HAEMATE P [Suspect]
     Active Substance: ANTIHEMOPHILIC FACTOR HUMAN
     Dosage: DOSE: 2X HAEMATE P 1000
     Dates: start: 20160124
  70. HAEMATE P [Suspect]
     Active Substance: ANTIHEMOPHILIC FACTOR HUMAN
     Dosage: DOSE: 1X HAEMATE P 1000
     Dates: start: 20160202
  71. HAEMATE P [Suspect]
     Active Substance: ANTIHEMOPHILIC FACTOR HUMAN
     Dosage: DOSE: 1X HAEMATE P 1000
     Dates: start: 20160216
  72. HAEMATE P [Suspect]
     Active Substance: ANTIHEMOPHILIC FACTOR HUMAN
     Dosage: DOSE: 1X HAEMATE P 1000
     Dates: start: 20160220
  73. HAEMATE P [Suspect]
     Active Substance: ANTIHEMOPHILIC FACTOR HUMAN
     Dosage: DOSE: 2X HAEMATE P 1000
     Dates: start: 20160220
  74. HAEMATE P [Suspect]
     Active Substance: ANTIHEMOPHILIC FACTOR HUMAN
     Dosage: DOSE: 2X HAEMATE P 1000
     Dates: start: 20160221
  75. PROLUTON [Concomitant]
     Active Substance: HYDROXYPROGESTERONE CAPROATE
     Indication: PROGESTERONE DECREASED
     Dosage: EXPOSURE DURING PREGNANCY
     Route: 058

REACTIONS (4)
  - Maternal exposure before pregnancy [Unknown]
  - Exposure during pregnancy [Unknown]
  - Abortion induced [Unknown]
  - Foetal heart rate abnormal [Unknown]
